FAERS Safety Report 7211964-5 (Version None)
Quarter: 2011Q1

REPORT INFORMATION
  Report Type: 
  Country: None (occurrence: None)
  Receive Date: 20110106
  Receipt Date: 20101228
  Transmission Date: 20110831
  Serious: No
  Sender: FDA-Public Use
  Company Number: US-BIOGENIDEC-2011BI000376

PATIENT
  Age: 62 Year
  Sex: Female

DRUGS (3)
  1. AVONEX [Concomitant]
     Indication: MULTIPLE SCLEROSIS
     Route: 030
     Dates: start: 19971201
  2. TYSABRI [Suspect]
     Indication: MULTIPLE SCLEROSIS
     Route: 042
     Dates: start: 20101215
  3. TYSABRI [Suspect]
     Route: 042
     Dates: start: 20090520, end: 20100714

REACTIONS (2)
  - HYPOAESTHESIA [None]
  - SENSATION OF HEAVINESS [None]
